FAERS Safety Report 15967031 (Version 3)
Quarter: 2019Q2

REPORT INFORMATION
  Report Type: Report from Study
  Country: ZA (occurrence: ZA)
  Receive Date: 20190215
  Receipt Date: 20190408
  Transmission Date: 20190711
  Serious: Yes (Life-Threatening, Hospitalization)
  Sender: FDA-Public Use
  Company Number: ZA-SA-2019SA027792

PATIENT
  Age: 36 Year
  Sex: Female

DRUGS (5)
  1. ASPIRIN [ACETYLSALICYLIC ACID] [Concomitant]
     Active Substance: ASPIRIN
     Dosage: UNK UNK, UNK
     Dates: start: 20190306
  2. TOUJEO [Suspect]
     Active Substance: INSULIN GLARGINE
     Dosage: 24 U, HS
     Dates: start: 20190122, end: 201902
  3. INSULIN GLULISINE [Suspect]
     Active Substance: INSULIN GLULISINE
     Dosage: 16-12 U, BID, AT BB(BEFORE BREAKFAST), BB (BEFORE BREAKFAST)
     Route: 065
     Dates: start: 20190121, end: 201902
  4. ASPAVOR [Concomitant]
     Active Substance: ATORVASTATIN
     Dosage: UNK UNK, UNK
     Dates: start: 20190306
  5. METFORMIN [Concomitant]
     Active Substance: METFORMIN HYDROCHLORIDE
     Dosage: 850 MG, BID (AFTER BREAKFAST, AFTER SUPPER)
     Dates: start: 20190306

REACTIONS (8)
  - Nausea [Not Recovered/Not Resolved]
  - Inability to afford medication [Unknown]
  - Dizziness [Not Recovered/Not Resolved]
  - Cough [Not Recovered/Not Resolved]
  - Influenza [Not Recovered/Not Resolved]
  - Headache [Unknown]
  - Fatigue [Recovered/Resolved]
  - Blood glucose decreased [Not Recovered/Not Resolved]
